FAERS Safety Report 6170524-8 (Version None)
Quarter: 2009Q2

REPORT INFORMATION
  Report Type: 
  Country: None (occurrence: None)
  Receive Date: 20090427
  Receipt Date: 20090427
  Transmission Date: 20091009
  Serious: Yes (Life-Threatening)
  Sender: FDA-Public Use
  Company Number: None

PATIENT
  Age: 59 Year
  Sex: Female
  Weight: 56 kg

DRUGS (12)
  1. WARFARIN SODIUM [Suspect]
     Indication: ATRIAL FIBRILLATION
     Dosage: PO PRN
     Dates: start: 20081216, end: 20081221
  2. ADVAIR HFA [Concomitant]
  3. ASPIRIN [Concomitant]
  4. CINACALCET [Concomitant]
  5. EPO [Concomitant]
  6. METOPROLOL TARTRATE [Concomitant]
  7. MONTELUKAST [Concomitant]
  8. PAROXETINE HCL [Concomitant]
  9. SEVELAMER [Concomitant]
  10. ATONASTATIN [Concomitant]
  11. MIDODRINE [Concomitant]
  12. LISINOPRIL [Concomitant]

REACTIONS (6)
  - CLOSTRIDIAL INFECTION [None]
  - FALL [None]
  - HAEMOGLOBIN DECREASED [None]
  - HEAD INJURY [None]
  - INTERNATIONAL NORMALISED RATIO INCREASED [None]
  - MELAENA [None]
